FAERS Safety Report 13423087 (Version 1)
Quarter: 2017Q2

REPORT INFORMATION
  Report Type: Spontaneous
  Country: NL (occurrence: NL)
  Receive Date: 20170410
  Receipt Date: 20170410
  Transmission Date: 20170830
  Serious: Yes (Other)
  Sender: FDA-Public Use
  Company Number: NL-TEVA-755358ACC

PATIENT
  Age: 76 Year
  Sex: Male

DRUGS (3)
  1. METHOTREXATE. [Suspect]
     Active Substance: METHOTREXATE
     Indication: RHEUMATOID ARTHRITIS
     Dosage: ONCE WEEKLY 25MG
     Route: 048
     Dates: start: 20150710, end: 20170107
  2. FOLIUMZUUR TABLET 5MG [Concomitant]
     Active Substance: FOLIC ACID
     Dosage: 5 MG FOUR TIMES WEEKLY
     Route: 048
     Dates: start: 20150227
  3. HYDROXYCHLOROQUINE TABLET OMHULD 200MG [Concomitant]
     Dosage: 100 MILLIGRAM DAILY; 200 MG TWICE DAILY
     Route: 048

REACTIONS (3)
  - Fungal skin infection [Recovered/Resolved]
  - Hypoacusis [Recovered/Resolved]
  - Respiratory tract infection [Recovered/Resolved]

NARRATIVE: CASE EVENT DATE: 20170107
